FAERS Safety Report 12448024 (Version 1)
Quarter: 2016Q2

REPORT INFORMATION
  Report Type: Report from Study
  Country: AU (occurrence: AU)
  Receive Date: 20160608
  Receipt Date: 20160608
  Transmission Date: 20160815
  Serious: Yes (Hospitalization)
  Sender: FDA-Public Use
  Company Number: PHHO2012AU020294

PATIENT
  Age: 64 Year
  Sex: Male
  Weight: 102 kg

DRUGS (27)
  1. PAZOPANIB [Suspect]
     Active Substance: PAZOPANIB
     Indication: METASTATIC RENAL CELL CARCINOMA
     Dosage: 600 MG, QD
     Route: 048
     Dates: end: 20130109
  2. ASPIRINE [Concomitant]
     Active Substance: ASPIRIN
     Indication: PRODUCT USED FOR UNKNOWN INDICATION
     Dosage: 100 QD
     Route: 048
     Dates: start: 20120801
  3. PARACETAMOL [Concomitant]
     Active Substance: ACETAMINOPHEN
     Indication: RESTLESS LEGS SYNDROME
     Dosage: 1 PRN
     Route: 048
     Dates: start: 20080101, end: 20121227
  4. ERYTHROMYCIN. [Concomitant]
     Active Substance: ERYTHROMYCIN
     Indication: PROPHYLAXIS
     Dosage: 250 QD
     Route: 048
     Dates: start: 20120928
  5. ONDANSETRON [Concomitant]
     Active Substance: ONDANSETRON
     Indication: NAUSEA
     Dosage: 8 PRN
     Route: 042
     Dates: start: 20121105, end: 20121108
  6. CRESTOR [Concomitant]
     Active Substance: ROSUVASTATIN CALCIUM
     Indication: HYPERCHOLESTEROLAEMIA
     Dosage: 20 QD
     Route: 048
     Dates: start: 20050101
  7. DIAMICRON [Concomitant]
     Active Substance: GLICLAZIDE
     Indication: TYPE 2 DIABETES MELLITUS
     Dosage: 2 QD
     Route: 048
     Dates: start: 20090101
  8. MORPHINE [Concomitant]
     Active Substance: MORPHINE
     Dosage: 5 QD
     Route: 058
     Dates: start: 20121102, end: 20121102
  9. FENTANYL. [Concomitant]
     Active Substance: FENTANYL
     Dosage: 100 PRN
     Route: 058
     Dates: start: 20121104, end: 20121105
  10. ERGOCALCIFEROL. [Concomitant]
     Active Substance: ERGOCALCIFEROL
     Indication: VITAMIN D DEFICIENCY
     Dosage: 1000 QD
     Route: 048
     Dates: start: 20090101
  11. FENTANYL. [Concomitant]
     Active Substance: FENTANYL
     Indication: ANALGESIC THERAPY
     Dosage: 20 BID
     Route: 042
     Dates: start: 20121103, end: 20121103
  12. GENTAMICIN. [Concomitant]
     Active Substance: GENTAMICIN
     Indication: DIAPHRAGMATIC DISORDER
     Dosage: 360 QD
     Route: 042
     Dates: start: 20121106, end: 20121106
  13. ATACAND [Concomitant]
     Active Substance: CANDESARTAN CILEXETIL
     Indication: HYPERTENSION
     Dosage: 8 QD
     Route: 048
     Dates: start: 20121207, end: 20121220
  14. COVERSYL [Concomitant]
     Active Substance: PERINDOPRIL
     Indication: HYPERTENSION
     Dosage: 4 QD
     Route: 048
     Dates: start: 20050101
  15. MIRTAZAPINE. [Concomitant]
     Active Substance: MIRTAZAPINE
     Indication: ANXIETY
     Dosage: 30 QD
     Route: 048
     Dates: start: 20090101
  16. MORPHINE [Concomitant]
     Active Substance: MORPHINE
     Indication: ANALGESIC THERAPY
     Dosage: 5  ONCE A WEEK
     Route: 030
     Dates: start: 20121101, end: 20121101
  17. OXYCODONE [Concomitant]
     Active Substance: OXYCODONE
     Indication: ANALGESIC THERAPY
     Dosage: 20  PRN
     Route: 048
     Dates: start: 20121106, end: 20121108
  18. DROPERIDOL. [Concomitant]
     Active Substance: DROPERIDOL
     Indication: ANALGESIC THERAPY
     Dosage: 0.5 PRN
     Route: 042
     Dates: start: 20121106, end: 20121107
  19. ONDANSETRON [Concomitant]
     Active Substance: ONDANSETRON
     Indication: PROPHYLAXIS OF NAUSEA AND VOMITING
     Dosage: PRN
     Route: 048
     Dates: start: 20121122
  20. STEMETIL//PROCHLORPERAZINE [Concomitant]
     Active Substance: PROCHLORPERAZINE
     Indication: NAUSEA
     Dosage: 5 PRN
     Route: 048
     Dates: start: 20121129
  21. GENTAMICIN. [Concomitant]
     Active Substance: GENTAMICIN
     Indication: PNEUMONIA
  22. CEPHAZOLIN [Concomitant]
     Active Substance: CEFAZOLIN
     Indication: PNEUMONIA
     Dosage: 1 TID
     Route: 042
     Dates: start: 20121105, end: 20121108
  23. METRONIDAZOLE. [Concomitant]
     Active Substance: METRONIDAZOLE
     Indication: PNEUMONIA
     Dosage: 500 BID
     Route: 042
     Dates: start: 20121106, end: 20121108
  24. ATACAND [Concomitant]
     Active Substance: CANDESARTAN CILEXETIL
     Dosage: 16 QD
     Route: 048
     Dates: start: 20121221
  25. COLOXYL WITH SENNA [Concomitant]
     Active Substance: DOCUSATE\SENNOSIDES
     Indication: CONSTIPATION PROPHYLAXIS
     Dosage: 1  BID
     Route: 048
     Dates: start: 20120815
  26. METFORMIN HYDROCHLORIDE. [Concomitant]
     Active Substance: METFORMIN HYDROCHLORIDE
     Indication: TYPE 2 DIABETES MELLITUS
     Dosage: 850 BID
     Route: 048
     Dates: start: 20050101
  27. CLEXANE [Concomitant]
     Active Substance: ENOXAPARIN SODIUM
     Indication: INVESTIGATION
     Dosage: 40 QD
     Route: 058

REACTIONS (2)
  - Pancreatic pseudocyst [Recovered/Resolved with Sequelae]
  - Pancreas infection [Recovered/Resolved]

NARRATIVE: CASE EVENT DATE: 20121227
